FAERS Safety Report 13225810 (Version 1)
Quarter: 2017Q1

REPORT INFORMATION
  Report Type: Spontaneous
  Country: BB (occurrence: MX)
  Receive Date: 20170213
  Receipt Date: 20170213
  Transmission Date: 20170428
  Serious: Yes (Death, Hospitalization)
  Sender: FDA-Public Use
  Company Number: BB-B.I. PHARMACEUTICALS,INC./RIDGEFIELD-2017-BI-007546

PATIENT
  Age: 85 Year
  Sex: Female

DRUGS (1)
  1. PRADAXAR [Suspect]
     Active Substance: DABIGATRAN ETEXILATE MESYLATE
     Indication: ATRIAL FIBRILLATION
     Route: 065

REACTIONS (4)
  - Hip fracture [Unknown]
  - Haemorrhage [Unknown]
  - Hypovolaemic shock [Fatal]
  - Fall [Unknown]

NARRATIVE: CASE EVENT DATE: 20170117
